FAERS Safety Report 5623998-2 (Version None)
Quarter: 2008Q1

REPORT INFORMATION
  Report Type: 
  Country: None (occurrence: None)
  Receive Date: 20080213
  Receipt Date: 20080207
  Transmission Date: 20080703
  Serious: Yes (Life-Threatening, Hospitalization)
  Sender: FDA-Public Use
  Company Number: US-TEVA-146878USA

PATIENT
  Age: 49 Year
  Sex: Male

DRUGS (7)
  1. FLUOROURACIL [Suspect]
     Dosage: DAY 1-5 EVERY 28 DAYS)
     Route: 041
     Dates: start: 20060407, end: 20060411
  2. CISPLATIN 1 MG/ML, 10MG/ML, 20MG/ML, 50 MG/ML + 100MG/ML [Suspect]
     Dosage: ON DAY 1 EVERY 28 DAYS
     Route: 041
     Dates: start: 20060407, end: 20060407
  3. HYDROCODONE BITARTRATE [Concomitant]
     Indication: PAIN
     Dosage: 75/500 MD/DAY (AS NEEDED)
     Route: 048
     Dates: start: 20060301
  4. ONDANSETRON HYDROCHLORIDE [Concomitant]
     Indication: NAUSEA
     Dosage: 8 MG (AS NEEDED)
     Route: 048
     Dates: start: 20060401
  5. ONDANSETRON HYDROCHLORIDE [Concomitant]
     Indication: VOMITING
  6. PROCHLORPERAZINE [Concomitant]
     Indication: NAUSEA
     Route: 048
     Dates: start: 20060401
  7. PROCHLORPERAZINE [Concomitant]
     Indication: VOMITING

REACTIONS (4)
  - CARDIAC ARREST [None]
  - HYPONATRAEMIA [None]
  - METABOLIC ACIDOSIS [None]
  - RENAL FAILURE [None]
